FAERS Safety Report 10670033 (Version 2)
Quarter: 2014Q4

REPORT INFORMATION
  Report Type: Spontaneous
  Country: CO (occurrence: CO)
  Receive Date: 20141223
  Receipt Date: 20141223
  Transmission Date: 20150529
  Serious: Yes (Hospitalization)
  Sender: FDA-Public Use
  Company Number: CO-AMGEN-COLSP2014042647

PATIENT
  Age: 48 Year
  Sex: Female

DRUGS (1)
  1. ENBREL [Suspect]
     Active Substance: ETANERCEPT
     Indication: ANKYLOSING SPONDYLITIS
     Dosage: 50 MG, WEEKLY
     Route: 058
     Dates: start: 201402, end: 20141104

REACTIONS (8)
  - Lymphadenopathy [Not Recovered/Not Resolved]
  - Injection site hypersensitivity [Recovered/Resolved]
  - Laryngitis [Not Recovered/Not Resolved]
  - Injection site pruritus [Recovered/Resolved]
  - Tonsillitis [Not Recovered/Not Resolved]
  - Injection site warmth [Recovered/Resolved]
  - Pyrexia [Not Recovered/Not Resolved]
  - Thermal burn [Not Recovered/Not Resolved]

NARRATIVE: CASE EVENT DATE: 201404
